FAERS Safety Report 14342124 (Version 2)
Quarter: 2018Q1

REPORT INFORMATION
  Report Type: Report from Study
  Country: CA (occurrence: CA)
  Receive Date: 20180102
  Receipt Date: 20180110
  Transmission Date: 20180509
  Serious: Yes (Other)
  Sender: FDA-Public Use
  Company Number: CA-GLAXOSMITHKLINE-CA2017GSK186090

PATIENT
  Sex: Female

DRUGS (1)
  1. MEPOLIZUMAB [Suspect]
     Active Substance: MEPOLIZUMAB
     Indication: ASTHMA
     Dosage: 100 MG, Z
     Route: 042
     Dates: start: 20171120

REACTIONS (8)
  - Headache [Not Recovered/Not Resolved]
  - Dyspnoea [Unknown]
  - Eye swelling [Unknown]
  - Throat tightness [Unknown]
  - Anaphylactic reaction [Unknown]
  - Hyperhidrosis [Unknown]
  - Vision blurred [Unknown]
  - Lip swelling [Unknown]
